FAERS Safety Report 11651652 (Version 1)
Quarter: 2015Q4

REPORT INFORMATION
  Report Type: Spontaneous
  Country: US (occurrence: None)
  Receive Date: 20151021
  Receipt Date: 20151021
  Transmission Date: 20160304
  Serious: No
  Sender: FDA-Public Use
  Company Number: None

PATIENT
  Age: 58 Year

DRUGS (5)
  1. MINERALS [Concomitant]
     Active Substance: MINERALS
  2. ANTIOXIDANTS [Concomitant]
  3. LYRICA [Suspect]
     Active Substance: PREGABALIN
     Indication: PANCREATITIS CHRONIC
     Dosage: ONCE TWICE A DAY FOR ONE WEEK, TWICE DAILY TAKEN BY MOUTH
     Route: 048
     Dates: start: 20150312
  4. MITO COCKTAIL [Concomitant]
  5. OTC VITAMINS [Concomitant]

REACTIONS (4)
  - Diplopia [None]
  - Dysstasia [None]
  - Dizziness [None]
  - Hypotension [None]

NARRATIVE: CASE EVENT DATE: 20150312
